FAERS Safety Report 4983268-2 (Version None)
Quarter: 2006Q2

REPORT INFORMATION
  Report Type: 
  Country: None (occurrence: None)
  Receive Date: 20060426
  Receipt Date: 20060418
  Transmission Date: 20061013
  Serious: Yes (Other)
  Sender: FDA-Public Use
  Company Number: 2006UW06722

PATIENT
  Age: 12 Year
  Sex: Male
  Weight: 43.2 kg

DRUGS (4)
  1. SEROQUEL [Suspect]
     Indication: BIPOLAR DISORDER
     Route: 048
     Dates: start: 20050104
  2. GABITRIL [Interacting]
     Indication: ANXIETY
     Route: 048
     Dates: start: 20041201, end: 20050301
  3. GABITRIL [Interacting]
     Indication: NIGHTMARE
     Route: 048
     Dates: start: 20041201, end: 20050301
  4. LAMICTAL [Interacting]
     Indication: BIPOLAR DISORDER
     Route: 048
     Dates: start: 20040901

REACTIONS (2)
  - COLOUR BLINDNESS [None]
  - DRUG INTERACTION [None]
